FAERS Safety Report 6750451-5 (Version None)
Quarter: 2010Q2

REPORT INFORMATION
  Report Type: 
  Country: None (occurrence: None)
  Receive Date: 20100527
  Receipt Date: 20100525
  Transmission Date: 20101027
  Serious: Yes (Life-Threatening, Other)
  Sender: FDA-Public Use
  Company Number: 2008JP005167

PATIENT
  Age: 4 Year
  Sex: Male
  Weight: 17.1 kg

DRUGS (16)
  1. FUNGUARD (MICAFUNGIN) INJECTION [Suspect]
     Indication: INFECTION PROPHYLAXIS
     Dosage: 17 MG, D, IV DRIP
     Route: 041
     Dates: start: 20080109, end: 20080210
  2. FUNGIZONE [Concomitant]
  3. ETOPOSIDE [Concomitant]
  4. CYCLOPHOSPHAMIDE [Concomitant]
  5. METHOTREXATE [Concomitant]
  6. PROGRAF [Concomitant]
  7. NEUTROGIN (LENOGRASTIM) [Concomitant]
  8. GAMMA-GLOBULIN (IMMUNOGLOBULIN) [Concomitant]
  9. FOSCAVIR [Concomitant]
  10. BACTRIM [Concomitant]
  11. GANCICLOVIR [Concomitant]
  12. CARBENIN (BETAMIPRON, PANIPENEM) [Concomitant]
  13. AMIKACIN [Concomitant]
  14. VIRUHEXAL (ACICLOVIR) [Concomitant]
  15. ZOVIRAX [Concomitant]
  16. PREDNISOLONE [Concomitant]

REACTIONS (5)
  - ENGRAFTMENT SYNDROME [None]
  - HAEMATURIA [None]
  - INFECTION [None]
  - NEUTROPENIA [None]
  - SEPSIS [None]
